FAERS Safety Report 21203566 (Version 2)
Quarter: 2022Q3

REPORT INFORMATION
  Report Type: Spontaneous
  Country: JP (occurrence: JP)
  Receive Date: 20220811
  Receipt Date: 20220829
  Transmission Date: 20221027
  Serious: Yes (Other)
  Sender: FDA-Public Use
  Company Number: JP-MYLANLABS-2022M1084155

PATIENT
  Age: 57 Year
  Sex: Male

DRUGS (2)
  1. EPIPEN [Suspect]
     Active Substance: EPINEPHRINE
     Indication: Anaphylactic reaction
     Dosage: 0.3 MILLIGRAM, QD
     Route: 065
     Dates: start: 20220805
  2. EPIPEN [Suspect]
     Active Substance: EPINEPHRINE
     Indication: Arthropod sting

REACTIONS (3)
  - Device use issue [Unknown]
  - Accidental exposure to product [Unknown]
  - Injection site coldness [Recovered/Resolved]

NARRATIVE: CASE EVENT DATE: 20220805
